FAERS Safety Report 8064815-3 (Version None)
Quarter: 2012Q1

REPORT INFORMATION
  Report Type: 
  Country: None (occurrence: None)
  Receive Date: 20120124
  Receipt Date: 20120113
  Transmission Date: 20120608
  Serious: Yes (Hospitalization, Other)
  Sender: FDA-Public Use
  Company Number: BR-BIOGENIDEC-2010BI021966

PATIENT
  Age: 41 Year
  Sex: Male

DRUGS (12)
  1. FLUOXETINE [Concomitant]
     Indication: DEPRESSION
  2. CARBAMAZEPINE [Concomitant]
  3. DIAZEPAN [Concomitant]
  4. SERTALINE [Concomitant]
     Indication: DEPRESSION
  5. GABAPENTIN [Concomitant]
     Indication: BONE PAIN
  6. FOLIC ACID [Concomitant]
     Indication: PAIN IN EXTREMITY
  7. CLONAZEPAM [Concomitant]
     Indication: DEPRESSION
  8. VENLAFAXINE [Concomitant]
  9. AVONEX [Suspect]
     Route: 030
     Dates: start: 20100621, end: 20111001
  10. GABAPENTIN [Concomitant]
     Indication: PAIN IN EXTREMITY
  11. FOLIC ACID [Concomitant]
     Indication: BONE PAIN
  12. AVONEX [Suspect]
     Indication: MULTIPLE SCLEROSIS
     Route: 030
     Dates: start: 20100621, end: 20111001

REACTIONS (18)
  - SYNCOPE [None]
  - HYPERAESTHESIA [None]
  - HEADACHE [None]
  - PYREXIA [None]
  - MULTIPLE SCLEROSIS [None]
  - MUSCULAR WEAKNESS [None]
  - PAIN [None]
  - SLUGGISHNESS [None]
  - PARAESTHESIA [None]
  - CONVULSION [None]
  - MEMORY IMPAIRMENT [None]
  - PAIN IN EXTREMITY [None]
  - TREMOR [None]
  - CENTRAL NERVOUS SYSTEM LESION [None]
  - MULTIPLE SCLEROSIS RELAPSE [None]
  - BURNING SENSATION [None]
  - FATIGUE [None]
  - BLINDNESS [None]
